FAERS Safety Report 24254782 (Version 6)
Quarter: 2024Q3

REPORT INFORMATION
  Report Type: Spontaneous
  Country: US (occurrence: US)
  Receive Date: 20240827
  Receipt Date: 20240924
  Transmission Date: 20241016
  Serious: Yes (Hospitalization, Other)
  Sender: PFIZER
  Company Number: US-PFIZER INC-PV202400110762

PATIENT
  Age: 84 Year
  Sex: Female

DRUGS (4)
  1. TUKYSA [Suspect]
     Active Substance: TUCATINIB
     Indication: Salivary gland cancer
     Dosage: 300 MG (2 TABLETS OF 150 MG), 2X/DAY
     Dates: end: 202408
  2. TUKYSA [Suspect]
     Active Substance: TUCATINIB
     Dosage: 300 MG, 2X/DAY (150MG, 2 TABLETS TWICE A DAY)
     Route: 048
     Dates: end: 20240821
  3. TUKYSA [Suspect]
     Active Substance: TUCATINIB
     Dosage: TWO 150MG TABLETS ORALLY, TWICE DAILY
     Route: 048
     Dates: start: 202408, end: 20240919
  4. CAPECITABINE [Concomitant]
     Active Substance: CAPECITABINE
     Dosage: 500MG, 3 TABS TWICE A DAY (TOTAL 1500 MG A DAY), EVERY 21 DAY

REACTIONS (12)
  - Oropharyngeal blistering [Unknown]
  - Tongue blistering [Unknown]
  - Oral mucosal blistering [Unknown]
  - Full blood count decreased [Unknown]
  - Haemorrhage [Unknown]
  - Dehydration [Unknown]
  - Asthenia [Unknown]
  - Lip blister [Unknown]
  - Abdominal discomfort [Unknown]
  - Off label use [Unknown]
  - Candida infection [Unknown]
  - Dysphagia [Unknown]

NARRATIVE: CASE EVENT DATE: 20240801
